FAERS Safety Report 8199639-X (Version None)
Quarter: 2012Q1

REPORT INFORMATION
  Report Type: 
  Country: None (occurrence: None)
  Receive Date: 20120311
  Receipt Date: 20120305
  Transmission Date: 20120608
  Serious: Yes (Life-Threatening)
  Sender: FDA-Public Use
  Company Number: FR-ASTRAZENECA-2012SE15405

PATIENT
  Age: 24409 Day
  Sex: Male

DRUGS (13)
  1. CEFUROXIME [Suspect]
     Dosage: ONCE/SINGLE ADMINISTRATION
     Route: 042
     Dates: start: 20120130
  2. EPHEDRINE [Suspect]
     Route: 042
     Dates: start: 20120130
  3. ATARAX [Concomitant]
     Dates: start: 20120130
  4. PANTOPRAZOLE [Suspect]
     Route: 042
     Dates: start: 20120130
  5. XYLOCAINE [Suspect]
     Indication: ANAESTHESIA
     Dosage: ONCE/SINGLE ADMINISTRATION
     Route: 042
     Dates: start: 20120130, end: 20120130
  6. SPASFON [Concomitant]
  7. SUFENTANIL CITRATE [Suspect]
     Indication: ANAESTHESIA
     Route: 042
     Dates: start: 20120130
  8. CALCIPARINE [Suspect]
     Route: 058
     Dates: start: 20120130
  9. TRAMADOL HCL [Suspect]
     Route: 042
     Dates: start: 20120130
  10. DIPRIVAN [Concomitant]
     Indication: ANAESTHESIA
     Route: 042
  11. NIMBEX [Suspect]
     Indication: ANAESTHESIA
     Route: 042
     Dates: start: 20120130
  12. ACETAMINOPHEN [Concomitant]
  13. ACUPAN [Concomitant]

REACTIONS (1)
  - ANGIOEDEMA [None]
